FAERS Safety Report 9471364 (Version 2)
Quarter: 2013Q4

REPORT INFORMATION
  Report Type: Report from Study
  Country: CA (occurrence: CA)
  Receive Date: 20130822
  Receipt Date: 20131210
  Transmission Date: 20140711
  Serious: Yes (Other)
  Sender: FDA-Public Use
  Company Number: CA-SANOFI-AVENTIS-2013SA083679

PATIENT
  Age: 64 Year
  Sex: 0

DRUGS (4)
  1. OXALIPLATIN [Suspect]
     Indication: COLORECTAL CANCER
     Route: 065
     Dates: start: 20120806, end: 20121025
  2. BEVACIZUMAB [Suspect]
     Indication: COLORECTAL CANCER
     Dosage: FORM- SOLUTION INTRAVENOUS
     Route: 042
     Dates: start: 20120806, end: 20121025
  3. FLUOROURACIL [Suspect]
     Indication: COLORECTAL CANCER
     Route: 065
     Dates: start: 20120806, end: 20121025
  4. FOLINIC ACID [Suspect]
     Indication: COLORECTAL CANCER
     Route: 065
     Dates: start: 20120806, end: 20121025

REACTIONS (1)
  - Toxicity to various agents [Unknown]
